FAERS Safety Report 24445156 (Version 2)
Quarter: 2024Q4

REPORT INFORMATION
  Report Type: Spontaneous
  Country: US (occurrence: US)
  Receive Date: 20241016
  Receipt Date: 20241104
  Transmission Date: 20250115
  Serious: Yes (Life-Threatening, Hospitalization)
  Sender: TEVA
  Company Number: US-TEVA-VS-3253787

PATIENT
  Age: 38 Year
  Sex: Male

DRUGS (6)
  1. CLOBAZAM [Suspect]
     Active Substance: CLOBAZAM
     Indication: Lennox-Gastaut syndrome
     Route: 065
  2. CLOBAZAM [Suspect]
     Active Substance: CLOBAZAM
  3. VALPROATE SODIUM [Suspect]
     Active Substance: VALPROATE SODIUM
     Indication: Seizure
     Route: 065
  4. LACOSAMIDE [Concomitant]
     Active Substance: LACOSAMIDE
     Indication: Lennox-Gastaut syndrome
     Route: 065
  5. LEVETIRACETAM [Concomitant]
     Active Substance: LEVETIRACETAM
     Indication: Seizure
     Route: 065
  6. LEVOCARNITINE [Concomitant]
     Active Substance: LEVOCARNITINE
     Indication: Seizure
     Route: 065

REACTIONS (9)
  - Hyperammonaemia [Recovered/Resolved]
  - Hypotension [Recovered/Resolved]
  - Lung consolidation [Recovered/Resolved]
  - Metabolic alkalosis [Recovered/Resolved]
  - Hypoxia [Recovered/Resolved]
  - Metabolic encephalopathy [Recovered/Resolved]
  - Hypothermia [Recovered/Resolved]
  - Hypercapnia [Recovered/Resolved]
  - Respiratory failure [Recovered/Resolved]
